FAERS Safety Report 8349082-5 (Version None)
Quarter: 2012Q2

REPORT INFORMATION
  Report Type: 
  Country: None (occurrence: None)
  Receive Date: 20120508
  Receipt Date: 20120421
  Transmission Date: 20120825
  Serious: No
  Sender: FDA-Public Use
  Company Number: JP-2012-14698

PATIENT
  Age: 87 Year
  Sex: Male
  Weight: 76 kg

DRUGS (15)
  1. KREMEZIN (CHARCOAL, ACTIVATED) [Concomitant]
  2. LANSOPRAZOLE [Concomitant]
  3. SAMSCA [Suspect]
     Indication: FLUID RETENTION
     Dosage: 15 MG MILLIGRAM(S), QAM, ORAL
     Route: 048
     Dates: start: 20120210, end: 20120224
  4. DIART (AZOSEMIDE) TABLET [Suspect]
     Indication: CARDIAC FAILURE
     Dosage: 60 MG MILLIGRAM(S), DAILY DOSE, ORAL
     Route: 048
  5. COUGHNOL (AMBROXOL HYDROCHLORIDE) [Concomitant]
  6. WARFARIN SODIUM [Concomitant]
  7. GLUCOSE (ASCORBIC ACID, GLUCOSE) [Concomitant]
  8. LASIX [Suspect]
     Indication: CARDIAC FAILURE
     Dosage: 40 MG MILLIGRAM(S), DAILY DOSE, ORAL
     Route: 048
  9. CALBLOCK (AZELNIDIPINE) [Concomitant]
  10. PROMAC (POLAPREZINC) [Concomitant]
  11. ATELEC (CILNIDIPINE) [Concomitant]
  12. MAGMITT (MAGNESIUM OXIDE) [Concomitant]
  13. ALLOPURINOL [Concomitant]
  14. YODEL S (SENNA EXTRACT) [Concomitant]
  15. HANP (CARPERITIDE) [Concomitant]

REACTIONS (1)
  - THIRST [None]
